FAERS Safety Report 6836406-0 (Version None)
Quarter: 2010Q3

REPORT INFORMATION
  Report Type: 
  Country: None (occurrence: None)
  Receive Date: 20100713
  Receipt Date: 20100702
  Transmission Date: 20110219
  Serious: Yes (Other)
  Sender: FDA-Public Use
  Company Number: US-JNJFOC-20100701637

PATIENT
  Sex: Male

DRUGS (5)
  1. REMICADE [Suspect]
     Indication: CROHN'S DISEASE
     Route: 042
  2. REMICADE [Suspect]
     Route: 042
  3. FLAGYL [Concomitant]
     Indication: FISTULA
     Route: 065
  4. PREDNISONE [Concomitant]
     Indication: CROHN'S DISEASE
     Route: 065
  5. UNKNOWN MEDICATION [Concomitant]
     Indication: ABDOMINAL PAIN UPPER
     Route: 065

REACTIONS (1)
  - CROHN'S DISEASE [None]
